FAERS Safety Report 13062214 (Version 1)
Quarter: 2016Q4

REPORT INFORMATION
  Report Type: Spontaneous
  Country: JP (occurrence: JP)
  Receive Date: 20161226
  Receipt Date: 20161226
  Transmission Date: 20170207
  Serious: Yes (Other)
  Sender: FDA-Public Use
  Company Number: JP-ABBVIE-16K-087-1816196-00

PATIENT

DRUGS (3)
  1. METHOTREXATE SODIUM. [Suspect]
     Active Substance: METHOTREXATE SODIUM
     Indication: PRODUCT USED FOR UNKNOWN INDICATION
     Route: 065
  2. INFLIXIMAB [Suspect]
     Active Substance: INFLIXIMAB
     Indication: PRODUCT USED FOR UNKNOWN INDICATION
     Route: 065
  3. HUMIRA [Suspect]
     Active Substance: ADALIMUMAB
     Indication: PRODUCT USED FOR UNKNOWN INDICATION
     Route: 058

REACTIONS (10)
  - Infectious pleural effusion [Unknown]
  - Interstitial lung disease [Unknown]
  - Lymphoproliferative disorder [Unknown]
  - Diffuse alveolar damage [Unknown]
  - Traumatic lung injury [Unknown]
  - Pulmonary toxicity [Unknown]
  - Organising pneumonia [Unknown]
  - Acid fast bacilli infection [Unknown]
  - Lung infection [Unknown]
  - Pneumonia [Unknown]
